FAERS Safety Report 20020722 (Version 3)
Quarter: 2021Q4

REPORT INFORMATION
  Report Type: Report from Study
  Country: FR (occurrence: FR)
  Receive Date: 20211101
  Receipt Date: 20211117
  Transmission Date: 20220303
  Serious: Yes (Hospitalization, Other)
  Sender: FDA-Public Use
  Company Number: FR-ASTELLAS-2021US027735

PATIENT
  Age: 35 Year
  Sex: Male
  Weight: 39 kg

DRUGS (14)
  1. FLUCONAZOLE [Interacting]
     Active Substance: FLUCONAZOLE
     Indication: Urinary tract infection fungal
     Dosage: UNK
     Route: 065
  2. TACROLIMUS [Interacting]
     Active Substance: TACROLIMUS
     Indication: Immunosuppression
     Dosage: UNK, DOSE DECREASED
     Route: 065
  3. TACROLIMUS [Interacting]
     Active Substance: TACROLIMUS
     Dosage: 2 MILLIGRAM, QD
     Route: 048
     Dates: start: 20170826
  4. CERTICAN [Interacting]
     Active Substance: EVEROLIMUS
     Indication: Immunosuppressant drug therapy
     Dosage: 2 UNITS UNKNOWN TOTAL DAILY DOSE
     Route: 065
     Dates: start: 20200606, end: 20200807
  5. CERTICAN [Interacting]
     Active Substance: EVEROLIMUS
     Indication: Catheter removal
     Dosage: UNK (1 UNITS UNKNOWN TOTAL DAILY DOSE )
     Route: 065
     Dates: start: 20200808, end: 20200820
  6. CERTICAN [Interacting]
     Active Substance: EVEROLIMUS
     Dosage: 0.75 UNITS UNKNOWN TOTAL DAILY DOSE
     Route: 065
     Dates: start: 20200821, end: 20200903
  7. CERTICAN [Interacting]
     Active Substance: EVEROLIMUS
     Dosage: 0.5 UNITS UNKNOWN TOTAL DAILY DOSE
     Route: 065
     Dates: start: 20200904, end: 20200916
  8. CERTICAN [Interacting]
     Active Substance: EVEROLIMUS
     Dosage: 1 UNITS UNKNOWN TOTAL DAILY DOSE
     Route: 065
     Dates: start: 20200917, end: 20201005
  9. CERTICAN [Interacting]
     Active Substance: EVEROLIMUS
     Dosage: 2 UNITS UNKNOWN, TOTAL DAILY DOSE
     Route: 065
     Dates: start: 20201006
  10. PREDNISONE [Concomitant]
     Active Substance: PREDNISONE
     Indication: Immunosuppressant drug therapy
     Dosage: UNK (5 UNITS UNKNOWN TOTAL DAILY DOSE )
     Route: 065
     Dates: start: 20170622, end: 20180523
  11. PREDNISONE [Concomitant]
     Active Substance: PREDNISONE
     Dosage: UNK (2.5 UNITS UNKNOWN TOTAL DAILY DOSE )
     Route: 065
     Dates: start: 20190524, end: 20200423
  12. PREDNISONE [Concomitant]
     Active Substance: PREDNISONE
     Dosage: UNK (20 UNITS UNKNOWN TOTAL DAILY DOSE)
     Route: 065
     Dates: start: 20200425, end: 20200502
  13. PREDNISONE [Concomitant]
     Active Substance: PREDNISONE
     Dosage: UNK (20 UNITS UNKNOWN TOTAL DAILY DOSE   )
     Route: 065
     Dates: start: 20200504, end: 20200505
  14. PREDNISONE [Concomitant]
     Active Substance: PREDNISONE
     Dosage: UNK (2.5 UNITS UNKNOWN TOTAL DAILY DOSE)
     Route: 065
     Dates: start: 20200506

REACTIONS (2)
  - Acute kidney injury [Recovered/Resolved]
  - Drug interaction [Unknown]

NARRATIVE: CASE EVENT DATE: 20200820
